FAERS Safety Report 19899400 (Version 1)
Quarter: 2021Q3

REPORT INFORMATION
  Report Type: Spontaneous
  Country: LT (occurrence: LT)
  Receive Date: 20210930
  Receipt Date: 20210930
  Transmission Date: 20211014
  Serious: Yes (Hospitalization, Other)
  Sender: FDA-Public Use
  Company Number: NVSC2021LT208572

PATIENT
  Age: 50 Year
  Sex: Male

DRUGS (9)
  1. METOPROLOL SUCCINATE. [Suspect]
     Active Substance: METOPROLOL SUCCINATE
     Indication: ARRHYTHMIA
  2. TORASEMIDE [Suspect]
     Active Substance: TORSEMIDE
     Indication: VENTRICULAR ARRHYTHMIA
     Dosage: UNK, UNKNOWN
     Route: 065
  3. METOPROLOL SUCCINATE. [Suspect]
     Active Substance: METOPROLOL SUCCINATE
     Indication: VENTRICULAR ARRHYTHMIA
     Dosage: 47.5 MG, Q12H
     Route: 065
  4. WARFARIN SODIUM. [Suspect]
     Active Substance: WARFARIN SODIUM
     Indication: VENTRICULAR ARRHYTHMIA
     Dosage: UNK ACCORDING TO SPA, INR
     Route: 065
  5. SPIRONOLACTONE. [Suspect]
     Active Substance: SPIRONOLACTONE
     Indication: VENTRICULAR ARRHYTHMIA
     Dosage: 25 MG, QD
     Route: 065
  6. RAMIPRIL. [Suspect]
     Active Substance: RAMIPRIL
     Indication: VENTRICULAR ARRHYTHMIA
     Dosage: UNK, UNKNOWN
     Route: 065
  7. WARFARIN SODIUM. [Suspect]
     Active Substance: WARFARIN SODIUM
     Indication: ARRHYTHMIA
  8. AMIODARONE HYDROCHLORIDE. [Suspect]
     Active Substance: AMIODARONE HYDROCHLORIDE
     Indication: VENTRICULAR ARRHYTHMIA
     Dosage: ACCORDING TO SPA, INR
     Route: 065
  9. MILDRONATE [Suspect]
     Active Substance: MELDONIUM
     Indication: VENTRICULAR ARRHYTHMIA
     Dosage: 500 MG, QD
     Route: 065

REACTIONS (5)
  - Dyspnoea exertional [Unknown]
  - Alcohol interaction [Recovered/Resolved]
  - Chest pain [Recovered/Resolved]
  - Intentional product misuse [Unknown]
  - Dyspnoea [Recovered/Resolved]

NARRATIVE: CASE EVENT DATE: 20201203
